FAERS Safety Report 8438289-4 (Version None)
Quarter: 2012Q2

REPORT INFORMATION
  Report Type: 
  Country: None (occurrence: None)
  Receive Date: 20120614
  Receipt Date: 20120604
  Transmission Date: 20120825
  Serious: Yes (Life-Threatening)
  Sender: FDA-Public Use
  Company Number: DE-BAYER-2012-055981

PATIENT
  Age: 67 Year
  Sex: Male

DRUGS (4)
  1. ACETYLSALICYLIC ACID SRT [Suspect]
     Indication: ESSENTIAL THROMBOCYTHAEMIA
     Dosage: 50 MG, UNK
     Route: 048
     Dates: start: 20070315
  2. ANAGRELIDE HCL [Suspect]
     Indication: ESSENTIAL THROMBOCYTHAEMIA
     Dosage: 1 MG, UNK
     Route: 048
     Dates: start: 20070315
  3. ACETYLSALICYLIC ACID SRT [Suspect]
     Dosage: 100 MG, UNK
     Route: 048
     Dates: start: 20070315
  4. FENOFIBRATE [Concomitant]
     Dosage: 250 MG, UNK
     Dates: start: 20040101

REACTIONS (5)
  - MYOCARDIAL INFARCTION [None]
  - EMBOLISM ARTERIAL [None]
  - MYOCARDIAL ISCHAEMIA [None]
  - CORONARY ARTERY DISEASE [None]
  - EMBOLISM [None]
